FAERS Safety Report 25685335 (Version 2)
Quarter: 2025Q3

REPORT INFORMATION
  Report Type: Report from Study
  Country: US (occurrence: US)
  Receive Date: 20250815
  Receipt Date: 20250925
  Transmission Date: 20251020
  Serious: Yes (Other)
  Sender: MALLINCKRODT
  Company Number: US-MALLINCKRODT-MNK202500541

PATIENT
  Age: 60 Year
  Sex: Female
  Weight: 169 kg

DRUGS (4)
  1. CORTICOTROPIN [Suspect]
     Active Substance: CORTICOTROPIN
     Indication: Rheumatoid arthritis
     Route: 058
     Dates: start: 20170302
  2. CORTICOTROPIN [Suspect]
     Active Substance: CORTICOTROPIN
     Indication: Rheumatoid arthritis
     Route: 058
  3. CORTICOTROPIN [Suspect]
     Active Substance: CORTICOTROPIN
  4. CORTICOTROPIN [Suspect]
     Active Substance: CORTICOTROPIN
     Route: 058
     Dates: start: 202312

REACTIONS (8)
  - Rheumatoid arthritis [Recovering/Resolving]
  - Dyspnoea [Unknown]
  - Illness [Unknown]
  - Dysphonia [Unknown]
  - Immune system disorder [Unknown]
  - Abdominal discomfort [Unknown]
  - Body temperature fluctuation [Unknown]
  - Drug ineffective [Unknown]
